FAERS Safety Report 10232306 (Version 1)
Quarter: 2014Q2

REPORT INFORMATION
  Report Type: Spontaneous
  Country: US (occurrence: None)
  Receive Date: 20140610
  Receipt Date: 20140610
  Transmission Date: 20141212
  Serious: Yes (Life-Threatening, Hospitalization)
  Sender: FDA-Public Use
  Company Number: None

PATIENT
  Age: 84 Year
  Sex: Female
  Weight: 120 kg

DRUGS (2)
  1. XARELTO 15 MG [Suspect]
     Indication: ATRIAL FIBRILLATION
  2. ASPIRIN [Concomitant]

REACTIONS (1)
  - Gastrointestinal haemorrhage [None]
